FAERS Safety Report 9395596 (Version 2)
Quarter: 2013Q3

REPORT INFORMATION
  Report Type: Spontaneous
  Country: IT (occurrence: IT)
  Receive Date: 20130711
  Receipt Date: 20130812
  Transmission Date: 20140515
  Serious: Yes (Other)
  Sender: FDA-Public Use
  Company Number: IT-UCBSA-090989

PATIENT
  Age: 79 Year
  Sex: Male

DRUGS (5)
  1. ISOSORBIDE MONONITRATE [Suspect]
     Dosage: DAILY DOSE: 50MG
     Route: 048
     Dates: start: 20120512, end: 20130511
  2. ALDACTONE [Suspect]
     Dosage: STRENGTH: 25 MG; DAILY DOSE: 1DF
     Route: 048
     Dates: start: 20120512, end: 20130511
  3. NAPRILENE [Suspect]
     Dosage: DOSE OF 5MG/DAY
     Route: 048
     Dates: start: 20120512, end: 20130511
  4. LASIX [Suspect]
     Dosage: STRENGTH: 25 MG; DAILY DOSE: 1DF
     Route: 048
     Dates: start: 20120512, end: 20130511
  5. DILATREND [Suspect]
     Dosage: STRENGTH: 6.25 MG; DAILY DOSE: 1DF
     Route: 048
     Dates: start: 20120512, end: 20130511

REACTIONS (2)
  - Orthostatic hypotension [Recovering/Resolving]
  - Renal failure acute [Recovering/Resolving]
